FAERS Safety Report 13994799 (Version 3)
Quarter: 2017Q4

REPORT INFORMATION
  Report Type: Report from Study
  Country: CA (occurrence: CA)
  Receive Date: 20170921
  Receipt Date: 20171003
  Transmission Date: 20180321
  Serious: Yes (Death, Hospitalization, Other)
  Sender: FDA-Public Use
  Company Number: CA-ROCHE-1959345

PATIENT
  Age: 52 Year
  Sex: Male
  Weight: 73 kg

DRUGS (13)
  1. AVASTIN [Suspect]
     Active Substance: BEVACIZUMAB
     Dosage: INFUSION NUMBER 4
     Route: 042
     Dates: start: 20170803
  2. DEXAMETHASONE. [Concomitant]
     Active Substance: DEXAMETHASONE
     Route: 065
     Dates: start: 20170607
  3. BROMELAIN [Concomitant]
     Active Substance: BROMELAINS
     Route: 065
     Dates: start: 20170607
  4. BERBERINE [Concomitant]
     Active Substance: BERBERINE
     Route: 065
     Dates: start: 20170607
  5. SENNOSIDE [Concomitant]
     Active Substance: SENNOSIDES
     Route: 065
     Dates: start: 20170607
  6. APO-SULFATRIM [Concomitant]
     Active Substance: SULFAMETHOXAZOLE\TRIMETHOPRIM
     Route: 065
     Dates: start: 20170607
  7. FRAGMIN [Concomitant]
     Active Substance: DALTEPARIN SODIUM
     Route: 065
     Dates: start: 20170801
  8. METONIA [Concomitant]
     Active Substance: METOCLOPRAMIDE
     Route: 065
     Dates: start: 20170607
  9. AVASTIN [Suspect]
     Active Substance: BEVACIZUMAB
     Indication: BRAIN NEOPLASM MALIGNANT
     Route: 042
     Dates: start: 20170621, end: 20170905
  10. AVASTIN [Suspect]
     Active Substance: BEVACIZUMAB
     Dosage: INFUSION #2
     Route: 042
     Dates: start: 20170821, end: 20170905
  11. PANTOPRAZOLE [Concomitant]
     Active Substance: PANTOPRAZOLE
     Route: 065
     Dates: start: 20170607
  12. BOSWELLIA [Concomitant]
     Route: 065
     Dates: start: 20170607
  13. LEVETIRACETAM. [Concomitant]
     Active Substance: LEVETIRACETAM
     Route: 065
     Dates: start: 20170607

REACTIONS (31)
  - Neutrophil percentage increased [Recovering/Resolving]
  - Blood urine present [Unknown]
  - Hyperaesthesia [Unknown]
  - Weight decreased [Unknown]
  - Bilirubin urine present [Not Recovered/Not Resolved]
  - Neutrophil count increased [Unknown]
  - Crystal urine present [Unknown]
  - Drug level decreased [Unknown]
  - C-reactive protein increased [Not Recovered/Not Resolved]
  - Seizure [Unknown]
  - Urine ketone body present [Not Recovered/Not Resolved]
  - Red blood cell count decreased [Not Recovered/Not Resolved]
  - Blood creatinine decreased [Not Recovered/Not Resolved]
  - Blood glucose increased [Unknown]
  - Eosinophil percentage decreased [Not Recovered/Not Resolved]
  - Protein urine present [Unknown]
  - Urine abnormality [Unknown]
  - Constipation [Unknown]
  - Haemoglobin decreased [Recovering/Resolving]
  - Lymphocyte percentage decreased [Unknown]
  - Lymphocyte count decreased [Unknown]
  - Haematocrit decreased [Recovered/Resolved]
  - Blood albumin decreased [Unknown]
  - Mean cell haemoglobin increased [Recovered/Resolved]
  - Red blood cell sedimentation rate increased [Not Recovered/Not Resolved]
  - Paraesthesia [Unknown]
  - Urine uric acid increased [Unknown]
  - Red cell distribution width increased [Not Recovered/Not Resolved]
  - Discomfort [Recovering/Resolving]
  - Malaise [Not Recovered/Not Resolved]
  - Death [Fatal]

NARRATIVE: CASE EVENT DATE: 20170728
